FAERS Safety Report 24617188 (Version 1)
Quarter: 2024Q4

REPORT INFORMATION
  Report Type: Spontaneous
  Country: US (occurrence: US)
  Receive Date: 20241114
  Receipt Date: 20241114
  Transmission Date: 20250115
  Serious: Yes (Hospitalization, Other)
  Sender: COOPERSURGICAL
  Company Number: US-COOPERSURGICAL, INC.-2024CPS003452

PATIENT
  Age: 45 Year
  Sex: Female
  Weight: 73.923 kg

DRUGS (1)
  1. PARAGARD T 380A [Suspect]
     Active Substance: COPPER
     Indication: Contraception
     Dosage: UNK
     Route: 015
     Dates: start: 20080624

REACTIONS (23)
  - Pulmonary embolism [Unknown]
  - COVID-19 [Unknown]
  - Uterine leiomyoma [Not Recovered/Not Resolved]
  - Drug ineffective [Unknown]
  - Pregnancy with contraceptive device [Recovered/Resolved]
  - Abortion spontaneous [Recovered/Resolved]
  - Device breakage [Not Recovered/Not Resolved]
  - Foreign body in reproductive tract [Not Recovered/Not Resolved]
  - Complication of device removal [Not Recovered/Not Resolved]
  - Embedded device [Not Recovered/Not Resolved]
  - Fear [Not Recovered/Not Resolved]
  - Emotional disorder [Unknown]
  - Hypertension [Unknown]
  - Migraine [Unknown]
  - Alopecia [Unknown]
  - Depression [Unknown]
  - Road traffic accident [Unknown]
  - Neck injury [Unknown]
  - Back injury [Unknown]
  - Pain [Not Recovered/Not Resolved]
  - Dyspareunia [Not Recovered/Not Resolved]
  - Off label use [Unknown]
  - Intentional device use issue [Unknown]

NARRATIVE: CASE EVENT DATE: 20140101
